FAERS Safety Report 19332476 (Version 2)
Quarter: 2021Q2

REPORT INFORMATION
  Report Type: Spontaneous
  Country: JP (occurrence: JP)
  Receive Date: 20210529
  Receipt Date: 20210607
  Transmission Date: 20210717
  Serious: Yes (Hospitalization, Other)
  Sender: FDA-Public Use
  Company Number: JP-ACCORD-226458

PATIENT
  Age: 43 Year
  Sex: Female

DRUGS (3)
  1. DEXAMETHASONE. [Suspect]
     Active Substance: DEXAMETHASONE
     Indication: ANGIOIMMUNOBLASTIC T-CELL LYMPHOMA
     Dosage: 33 MG/DAY OF DEXAMETHASONE FROM DAY 1 TO DAY 4
  2. GEMCITABINE/GEMCITABINE HYDROCHLORIDE [Suspect]
     Active Substance: GEMCITABINE\GEMCITABINE HYDROCHLORIDE
     Indication: ANGIOIMMUNOBLASTIC T-CELL LYMPHOMA
     Dosage: 1000 MG/M2 OF GEMCITABINE ON DAYS 1 AND 8
  3. CISPLATIN. [Suspect]
     Active Substance: CISPLATIN
     Indication: ANGIOIMMUNOBLASTIC T-CELL LYMPHOMA
     Dosage: ON DAY 1, 100 MG

REACTIONS (6)
  - Condition aggravated [Recovered/Resolved]
  - Anaemia [Recovered/Resolved]
  - Renal-limited thrombotic microangiopathy [Recovered/Resolved]
  - Acute kidney injury [Recovered/Resolved]
  - Urinary casts [Recovered/Resolved]
  - Inflammation [Recovered/Resolved]
